FAERS Safety Report 10814300 (Version 1)
Quarter: 2015Q1

REPORT INFORMATION
  Report Type: Report from Study
  Country: US (occurrence: US)
  Receive Date: 20150218
  Receipt Date: 20150218
  Transmission Date: 20150721
  Serious: No
  Sender: FDA-Public Use
  Company Number: US-ABBVIE-14K-163-1276713-00

PATIENT
  Sex: Female

DRUGS (20)
  1. GUMMY CALCIUM [Concomitant]
     Indication: BONE DISORDER
     Route: 048
  2. BORON [Concomitant]
     Active Substance: BORON
     Indication: BONE DISORDER
  3. JANTOVEN [Concomitant]
     Active Substance: WARFARIN SODIUM
  4. JANTOVEN [Concomitant]
     Active Substance: WARFARIN SODIUM
  5. JANTOVEN [Concomitant]
     Active Substance: WARFARIN SODIUM
  6. VITAMIN B12 [Concomitant]
     Active Substance: CYANOCOBALAMIN
     Indication: PRODUCT USED FOR UNKNOWN INDICATION
  7. COCONUT OIL [Concomitant]
     Active Substance: COCONUT OIL
     Indication: PRODUCT USED FOR UNKNOWN INDICATION
     Dosage: APPLIES TO NECK, BACK, WRIST
  8. MARIJUANA [Concomitant]
     Active Substance: CANNABIS SATIVA SUBSP. INDICA TOP
     Indication: PRODUCT USED FOR UNKNOWN INDICATION
     Dosage: SMOKES AT NIGHT
  9. MERCAPTOPURINE. [Concomitant]
     Active Substance: MERCAPTOPURINE
     Indication: RECTAL HAEMORRHAGE
     Route: 048
  10. VITAMIN D [Concomitant]
     Active Substance: CHOLECALCIFEROL
     Indication: PRODUCT USED FOR UNKNOWN INDICATION
  11. CANNABIS SATIVA OIL [Concomitant]
     Active Substance: CANNABIS SATIVA SUBSP. INDICA TOP
     Indication: PRODUCT USED FOR UNKNOWN INDICATION
     Dosage: APPLIES TO NECK, BACK, WRIST
  12. JANTOVEN [Concomitant]
     Active Substance: WARFARIN SODIUM
  13. JANTOVEN [Concomitant]
     Active Substance: WARFARIN SODIUM
  14. HUMIRA [Suspect]
     Active Substance: ADALIMUMAB
     Indication: COLITIS ULCERATIVE
     Dates: start: 20121215
  15. ZINC [Concomitant]
     Active Substance: ZINC\ZINC CHLORIDE
     Indication: PRODUCT USED FOR UNKNOWN INDICATION
  16. JANTOVEN [Concomitant]
     Active Substance: WARFARIN SODIUM
     Indication: PRODUCT USED FOR UNKNOWN INDICATION
     Dosage: 5 MG, 10 MG, 10 MG, 10 MG, 7.5 MG, 10 MG THEN 10 MG AND THEN STARTS OVER
  17. BIOTIN [Concomitant]
     Active Substance: BIOTIN
     Indication: PRODUCT USED FOR UNKNOWN INDICATION
  18. JANTOVEN [Concomitant]
     Active Substance: WARFARIN SODIUM
  19. VITAMIN C [Concomitant]
     Active Substance: ASCORBIC ACID
     Indication: PRODUCT USED FOR UNKNOWN INDICATION
  20. MAGNESIUM [Concomitant]
     Active Substance: MAGNESIUM
     Indication: PRODUCT USED FOR UNKNOWN INDICATION

REACTIONS (7)
  - Abdominal pain upper [Recovered/Resolved]
  - Pain [Unknown]
  - Headache [Recovered/Resolved]
  - Constipation [Unknown]
  - Vascular injury [Unknown]
  - Pain in extremity [Recovered/Resolved]
  - Frequent bowel movements [Recovering/Resolving]

NARRATIVE: CASE EVENT DATE: 2014
